FAERS Safety Report 18260019 (Version 1)
Quarter: 2020Q3

REPORT INFORMATION
  Report Type: Spontaneous
  Country: NL (occurrence: NL)
  Receive Date: 20200913
  Receipt Date: 20200913
  Transmission Date: 20201103
  Serious: Yes (Hospitalization)
  Sender: FDA-Public Use
  Company Number: NL-AMGEN-NLDSP2020145208

PATIENT
  Age: 75 Year
  Sex: Female

DRUGS (9)
  1. CARBOPLATIN. [Suspect]
     Active Substance: CARBOPLATIN
     Indication: NON-SMALL CELL LUNG CANCER
     Dosage: 709 MILLIGRAM, ONCE
     Route: 042
     Dates: start: 20200723
  2. PACLITAXEL. [Suspect]
     Active Substance: PACLITAXEL
     Indication: NON-SMALL CELL LUNG CANCER
     Dosage: 347 MILLIGRAM, ONCE
     Route: 042
     Dates: start: 20200723
  3. CALCICHEW [Concomitant]
     Active Substance: CALCIUM CARBONATE
     Dosage: 500 MG/400 IU 1 X 2
     Dates: start: 20200812
  4. BEVACIZUMAB. [Suspect]
     Active Substance: BEVACIZUMAB
     Indication: NON-SMALL CELL LUNG CANCER
     Dosage: 990 MILLIGRAM, ONCE
     Route: 042
     Dates: start: 20200723
  5. ATORVASTATIN [Concomitant]
     Active Substance: ATORVASTATIN
     Dosage: 40 MILLIGRAM
  6. MICARDIS [Concomitant]
     Active Substance: TELMISARTAN
     Dosage: 20 MILLIGRAM 1X1
  7. OMEPRAZOLE. [Concomitant]
     Active Substance: OMEPRAZOLE
     Dosage: 40 MILLIGRAM
     Dates: start: 20171101
  8. HYDROCHLOROTHIAZIDE. [Concomitant]
     Active Substance: HYDROCHLOROTHIAZIDE
     Dosage: 12.5 MILLIGRAM
     Dates: start: 2017
  9. FOLIUMZUUR [Concomitant]
     Active Substance: FOLIC ACID
     Dosage: 0.5 MILLIGRAM 1X1
     Dates: start: 202006

REACTIONS (3)
  - Peroneal nerve palsy [Not Recovered/Not Resolved]
  - Anaemia [Recovered/Resolved]
  - Dehydration [Recovered/Resolved]

NARRATIVE: CASE EVENT DATE: 20200811
